FAERS Safety Report 25980261 (Version 1)
Quarter: 2025Q4

REPORT INFORMATION
  Report Type: Spontaneous
  Country: US (occurrence: US)
  Receive Date: 20251030
  Receipt Date: 20251030
  Transmission Date: 20260117
  Serious: No
  Sender: PL DEVELOPMENTS
  Company Number: US-P+L Devolo-2187577

PATIENT
  Sex: Male

DRUGS (1)
  1. NICOTINE POLACRILEX [Suspect]
     Active Substance: NICOTINE
     Indication: Smoking cessation therapy

REACTIONS (4)
  - Product container seal issue [Unknown]
  - Tongue discomfort [Recovered/Resolved]
  - Product taste abnormal [Unknown]
  - Product coating issue [Unknown]
